FAERS Safety Report 8600801-X (Version None)
Quarter: 2012Q3

REPORT INFORMATION
  Report Type: 
  Country: None (occurrence: None)
  Receive Date: 20120817
  Receipt Date: 20120813
  Transmission Date: 20120928
  Serious: No
  Sender: FDA-Public Use
  Company Number: US-BAYER-2012-083812

PATIENT
  Age: 18 Year
  Sex: Female

DRUGS (1)
  1. MIRENA [Suspect]
     Indication: CONTRACEPTION
     Dosage: 20MCG QD
     Route: 015
     Dates: start: 20111001

REACTIONS (3)
  - ABDOMINAL PAIN UPPER [None]
  - VAGINAL DISCHARGE [None]
  - OVARIAN ENLARGEMENT [None]
